FAERS Safety Report 4546505-4 (Version None)
Quarter: 2005Q1

REPORT INFORMATION
  Report Type: 
  Country: None (occurrence: None)
  Receive Date: 20050106
  Receipt Date: 20050103
  Transmission Date: 20050727
  Serious: Yes (Death, Hospitalization)
  Sender: FDA-Public Use
  Company Number: 105

PATIENT
  Age: 63 Year
  Sex: Male

DRUGS (8)
  1. MELPHALAN [Suspect]
     Indication: MULTIPLE MYELOMA
     Dosage: 400MGM2 CUMULATIVE DOSE
     Route: 042
     Dates: start: 20040518
  2. LOVENOX [Concomitant]
     Dates: start: 20040922
  3. GANCICLOVIR [Concomitant]
     Dosage: 900MG TWICE PER DAY
     Dates: start: 20040913
  4. METOPROLOL [Concomitant]
     Dosage: 75MG TWICE PER DAY
     Dates: start: 20040913
  5. LASIX [Concomitant]
     Dosage: 40MG PER DAY
     Dates: start: 20040913
  6. SYNTHROID [Concomitant]
     Dates: start: 20040913
  7. AMIODARONE HCL [Concomitant]
     Dosage: 200MG TWICE PER DAY
     Dates: start: 20040913
  8. EPO [Concomitant]
     Dosage: 40000UNIT WEEKLY

REACTIONS (10)
  - ANAEMIA [None]
  - CEREBRAL INFARCTION [None]
  - CEREBROVASCULAR ACCIDENT [None]
  - ESCHERICHIA SEPSIS [None]
  - MULTI-ORGAN FAILURE [None]
  - NEUTROPENIA [None]
  - OXYGEN SATURATION DECREASED [None]
  - PYREXIA [None]
  - SEPTIC SHOCK [None]
  - THROMBOCYTOPENIA [None]
